FAERS Safety Report 8169811-3 (Version None)
Quarter: 2012Q1

REPORT INFORMATION
  Report Type: 
  Country: None (occurrence: None)
  Receive Date: 20120228
  Receipt Date: 20120223
  Transmission Date: 20120608
  Serious: Yes (Other)
  Sender: FDA-Public Use
  Company Number: US-JNJFOC-20100806064

PATIENT
  Sex: Female

DRUGS (12)
  1. CYMBALTA [Concomitant]
     Indication: FIBROMYALGIA
     Route: 065
  2. ALBUTEROL [Concomitant]
     Indication: ASTHMA
     Route: 055
  3. LEVAQUIN [Suspect]
     Indication: URINARY TRACT INFECTION
     Route: 048
     Dates: start: 20071212
  4. LEVAQUIN [Suspect]
     Route: 048
     Dates: start: 20080101, end: 20080101
  5. TRAZODONE HCL [Concomitant]
     Indication: SLEEP DISORDER THERAPY
     Route: 065
  6. LEVAQUIN [Suspect]
     Route: 048
     Dates: start: 20080101, end: 20080101
  7. LEVAQUIN [Suspect]
     Indication: INFECTION
     Route: 048
     Dates: start: 20071212
  8. STEROIDS NOS [Suspect]
     Indication: INFECTION
     Route: 065
  9. NEXIUM [Concomitant]
     Indication: GASTROOESOPHAGEAL REFLUX DISEASE
     Route: 065
  10. DOXEPIN HCL [Concomitant]
     Indication: SLEEP DISORDER THERAPY
     Route: 065
  11. CYMBALTA [Concomitant]
     Indication: MOOD SWINGS
     Route: 065
  12. XANAX [Concomitant]

REACTIONS (3)
  - ANXIETY [None]
  - ROTATOR CUFF SYNDROME [None]
  - DEPRESSION [None]
